FAERS Safety Report 24774451 (Version 1)
Quarter: 2024Q4

REPORT INFORMATION
  Report Type: Spontaneous
  Country: CN (occurrence: CN)
  Receive Date: 20241225
  Receipt Date: 20241225
  Transmission Date: 20250114
  Serious: Yes (Death)
  Sender: NOVITIUM PHARMA
  Company Number: CN-NOVITIUMPHARMA-2024CNNVP02974

PATIENT
  Age: 33 Year
  Sex: Male

DRUGS (5)
  1. POTASSIUM CHLORIDE [Suspect]
     Active Substance: POTASSIUM CHLORIDE
     Indication: Supplementation therapy
  2. POTASSIUM CHLORIDE [Suspect]
     Active Substance: POTASSIUM CHLORIDE
     Indication: Gastrointestinal decompression
  3. BETAMETHASONE [Concomitant]
     Active Substance: BETAMETHASONE
     Indication: Blindness
  4. TORSEMIDE [Concomitant]
     Active Substance: TORSEMIDE
     Indication: Fractional uric acid excretion
  5. ALANYL GLUTAMINE [Concomitant]
     Active Substance: ALANYL GLUTAMINE
     Indication: Nutritional supplementation

REACTIONS (1)
  - Drug ineffective [Fatal]
